FAERS Safety Report 18250420 (Version 7)
Quarter: 2025Q2

REPORT INFORMATION
  Report Type: Report from Study
  Country: KR (occurrence: KR)
  Receive Date: 20200909
  Receipt Date: 20250415
  Transmission Date: 20250717
  Serious: Yes (Death, Hospitalization, Other)
  Sender: JOHNSON AND JOHNSON
  Company Number: None

PATIENT
  Age: 62 Year
  Sex: Female
  Weight: 57.2 kg

DRUGS (95)
  1. UPTRAVI [Suspect]
     Active Substance: SELEXIPAG
     Indication: Pulmonary arterial hypertension
     Dosage: 0.2 MG, BID
     Route: 048
     Dates: start: 20171222, end: 20180118
  2. UPTRAVI [Suspect]
     Active Substance: SELEXIPAG
     Dosage: 0.2 MG, QID
     Route: 048
     Dates: start: 20180119, end: 20180125
  3. UPTRAVI [Suspect]
     Active Substance: SELEXIPAG
     Dosage: 1.2 MG, QD
     Route: 048
     Dates: start: 20180126, end: 20180411
  4. UPTRAVI [Suspect]
     Active Substance: SELEXIPAG
     Dosage: 1 MG, QD
     Route: 048
     Dates: start: 20180412, end: 20180412
  5. UPTRAVI [Suspect]
     Active Substance: SELEXIPAG
     Route: 048
     Dates: start: 20180413, end: 20180415
  6. UPTRAVI [Suspect]
     Active Substance: SELEXIPAG
     Route: 048
     Dates: start: 20180418, end: 20180418
  7. UPTRAVI [Suspect]
     Active Substance: SELEXIPAG
     Route: 048
     Dates: start: 20180416, end: 20180417
  8. UPTRAVI [Suspect]
     Active Substance: SELEXIPAG
     Route: 048
     Dates: start: 20180419, end: 20180423
  9. UPTRAVI [Suspect]
     Active Substance: SELEXIPAG
     Route: 048
     Dates: start: 20171222, end: 20180118
  10. UPTRAVI [Suspect]
     Active Substance: SELEXIPAG
     Route: 048
     Dates: start: 20180126, end: 20180411
  11. UPTRAVI [Suspect]
     Active Substance: SELEXIPAG
     Route: 048
     Dates: start: 20180412, end: 20180412
  12. UPTRAVI [Suspect]
     Active Substance: SELEXIPAG
     Route: 048
     Dates: start: 20180119, end: 20180125
  13. OPSUMIT [Suspect]
     Active Substance: MACITENTAN
     Indication: Pulmonary arterial hypertension
     Dosage: 10 MG, QD
     Route: 048
     Dates: start: 20171128, end: 20180524
  14. OPSUMIT [Suspect]
     Active Substance: MACITENTAN
     Indication: Pulmonary hypertension
  15. ACETAMINOPHEN [Concomitant]
     Active Substance: ACETAMINOPHEN
     Route: 048
     Dates: start: 20180304, end: 20180305
  16. ACETAMINOPHEN [Concomitant]
     Active Substance: ACETAMINOPHEN
     Route: 048
     Dates: start: 20180222, end: 20180302
  17. DIAZEPAM [Concomitant]
     Active Substance: DIAZEPAM
     Dosage: 5 MG, QD
     Route: 048
     Dates: start: 20180221, end: 20180221
  18. DIAZEPAM [Concomitant]
     Active Substance: DIAZEPAM
     Route: 048
     Dates: start: 20180221, end: 20180221
  19. PANTOPRAZOLE SODIUM [Concomitant]
     Active Substance: PANTOPRAZOLE SODIUM
     Route: 048
     Dates: start: 20171020, end: 20171214
  20. PANTOPRAZOLE SODIUM [Concomitant]
     Active Substance: PANTOPRAZOLE SODIUM
     Dates: start: 20171215, end: 20180524
  21. SPIRONOLACTONE [Concomitant]
     Active Substance: SPIRONOLACTONE
     Route: 048
     Dates: start: 20180119, end: 20180201
  22. SPIRONOLACTONE [Concomitant]
     Active Substance: SPIRONOLACTONE
     Route: 048
     Dates: start: 20180202, end: 20180304
  23. SPIRONOLACTONE [Concomitant]
     Active Substance: SPIRONOLACTONE
     Route: 048
     Dates: start: 20161019, end: 20180119
  24. SPIRONOLACTONE [Concomitant]
     Active Substance: SPIRONOLACTONE
     Route: 048
     Dates: start: 20180305
  25. VALSARTAN [Concomitant]
     Active Substance: VALSARTAN
     Route: 048
     Dates: start: 20180222, end: 20180224
  26. SILDENAFIL CITRATE [Concomitant]
     Active Substance: SILDENAFIL CITRATE
     Indication: Pulmonary arterial hypertension
     Dosage: 60 MG, TID
     Route: 048
     Dates: start: 20151230, end: 20180208
  27. PHAZYME [AMYLASE;LIPASE;PROTEASE NOS;SIMETICONE] [Concomitant]
     Indication: Prophylaxis
     Dosage: 95 MG, TID
     Route: 048
     Dates: start: 20171124, end: 20180405
  28. CANRENOATE POTASSIUM [Concomitant]
     Active Substance: CANRENOATE POTASSIUM
     Dosage: 25 MG, BID
     Route: 048
     Dates: start: 20161019, end: 20180119
  29. CANRENOATE POTASSIUM [Concomitant]
     Active Substance: CANRENOATE POTASSIUM
     Dosage: 25 MG, TID
     Route: 048
     Dates: start: 20180119, end: 20180201
  30. CANRENOATE POTASSIUM [Concomitant]
     Active Substance: CANRENOATE POTASSIUM
     Dosage: 25 MG, BID
     Route: 048
     Dates: start: 20180202, end: 20180304
  31. CANRENOATE POTASSIUM [Concomitant]
     Active Substance: CANRENOATE POTASSIUM
     Dosage: 25 MG, TID
     Route: 048
     Dates: start: 20180305, end: 20180409
  32. CANRENOATE POTASSIUM [Concomitant]
     Active Substance: CANRENOATE POTASSIUM
     Route: 048
     Dates: start: 20180105, end: 20180201
  33. CANRENOATE POTASSIUM [Concomitant]
     Active Substance: CANRENOATE POTASSIUM
     Route: 048
     Dates: start: 20180301, end: 20180403
  34. CANRENOATE POTASSIUM [Concomitant]
     Active Substance: CANRENOATE POTASSIUM
     Route: 048
     Dates: start: 20180316
  35. LASIX [Concomitant]
     Active Substance: FUROSEMIDE
     Dosage: 3 DF, QD
     Route: 048
     Dates: start: 20171126, end: 20171214
  36. LASIX [Concomitant]
     Active Substance: FUROSEMIDE
     Dosage: UNK, QID
     Route: 048
     Dates: start: 20171215, end: 20180201
  37. LASIX [Concomitant]
     Active Substance: FUROSEMIDE
     Route: 042
     Dates: start: 20171215, end: 20171215
  38. LASIX [Concomitant]
     Active Substance: FUROSEMIDE
     Dosage: 20 MG, QD
     Route: 042
     Dates: start: 20180119, end: 20180119
  39. LASIX [Concomitant]
     Active Substance: FUROSEMIDE
     Dosage: 2 DF, BID
     Route: 048
     Dates: start: 20180202, end: 20180213
  40. LASIX [Concomitant]
     Active Substance: FUROSEMIDE
     Dosage: 3 DF, QD
     Route: 048
     Dates: start: 20180214, end: 20180221
  41. LASIX [Concomitant]
     Active Substance: FUROSEMIDE
     Dosage: 4 DF, QD
     Route: 048
     Dates: start: 20180222, end: 20180223
  42. LASIX [Concomitant]
     Active Substance: FUROSEMIDE
     Dosage: 4 DF, QD
     Route: 048
     Dates: start: 20180302, end: 20180318
  43. LASIX [Concomitant]
     Active Substance: FUROSEMIDE
     Dosage: 3 DF, QD
     Route: 048
     Dates: start: 20180319, end: 20180406
  44. LASIX [Concomitant]
     Active Substance: FUROSEMIDE
     Route: 048
     Dates: start: 20180202, end: 20180213
  45. PERINDOPRIL ARGININE [Concomitant]
     Active Substance: PERINDOPRIL ARGININE
     Dosage: 0.5 TAB, QD
     Route: 048
     Dates: start: 20171020, end: 20180201
  46. PANTOPRAZOLE SODIUM [Concomitant]
     Active Substance: PANTOPRAZOLE SODIUM
     Dosage: 40 MG, QD
     Route: 048
     Dates: start: 20171020, end: 20171214
  47. PANTOPRAZOLE SODIUM [Concomitant]
     Active Substance: PANTOPRAZOLE SODIUM
     Dosage: 20 MG, QD
     Route: 048
     Dates: start: 20171215, end: 20180524
  48. PANTOPRAZOLE SODIUM [Concomitant]
     Active Substance: PANTOPRAZOLE SODIUM
     Route: 048
     Dates: start: 20171215, end: 20180524
  49. PANTOPRAZOLE SODIUM [Concomitant]
     Active Substance: PANTOPRAZOLE SODIUM
     Route: 048
     Dates: start: 20171020, end: 20171214
  50. UDENAFIL [Concomitant]
     Active Substance: UDENAFIL
     Indication: Pulmonary arterial hypertension
     Dosage: 50 MG, QD
     Route: 048
     Dates: start: 20180209, end: 20180516
  51. LEVOTHYROXINE SODIUM [Concomitant]
     Active Substance: LEVOTHYROXINE SODIUM
     Dosage: 100 MCG, QD
     Route: 048
     Dates: start: 20131017, end: 20180530
  52. LEVOTHYROXINE SODIUM [Concomitant]
     Active Substance: LEVOTHYROXINE SODIUM
     Route: 048
     Dates: start: 20131017, end: 20180530
  53. WARFARIN [Concomitant]
     Active Substance: WARFARIN
     Dosage: 7.5 MG, QD
     Route: 048
     Dates: start: 20140502, end: 20171221
  54. WARFARIN [Concomitant]
     Active Substance: WARFARIN
     Dosage: 5 MG, QD
     Route: 048
     Dates: start: 20171222, end: 20180406
  55. WARFARIN [Concomitant]
     Active Substance: WARFARIN
     Dosage: 2.5 MG, QD
     Route: 048
     Dates: start: 20180407, end: 20180408
  56. WARFARIN [Concomitant]
     Active Substance: WARFARIN
     Dosage: 5 MG, QD
     Route: 048
     Dates: start: 20180409, end: 20180524
  57. CAVID [CALCIUM;COLECALCIFEROL;MAGNESIUM] [Concomitant]
     Dosage: 1 DF, QD
     Route: 048
     Dates: start: 20171124, end: 20180524
  58. DICAMAX [Concomitant]
     Dosage: 1 DF, QD
     Route: 048
     Dates: start: 20170730, end: 20180524
  59. CONTINE [THEOPHYLLINE] [Concomitant]
     Dosage: 600 MG, BID
     Route: 048
     Dates: start: 20180105, end: 20180201
  60. CONTINE [THEOPHYLLINE] [Concomitant]
     Dosage: 600 MG, QD
     Route: 048
     Dates: start: 20180202
  61. BEECOM [Concomitant]
     Dosage: 1 DF, QD
     Route: 048
     Dates: start: 20180119, end: 20180524
  62. REMODULIN [Concomitant]
     Active Substance: TREPROSTINIL
     Indication: Right-to-left cardiac shunt
     Dosage: 4 NG/KG, PER MIN
     Route: 058
     Dates: start: 20180412
  63. REMODULIN [Concomitant]
     Active Substance: TREPROSTINIL
     Dosage: 10 NG/KG, PER MIN
     Route: 058
     Dates: start: 20180414
  64. REMODULIN [Concomitant]
     Active Substance: TREPROSTINIL
     Dosage: 14 NG/KG, PER MIN
     Route: 058
     Dates: start: 20180415
  65. REMODULIN [Concomitant]
     Active Substance: TREPROSTINIL
     Dosage: 24 NG/KG, PER MIN
     Route: 058
     Dates: start: 20180418
  66. REMODULIN [Concomitant]
     Active Substance: TREPROSTINIL
     Dosage: 26 NG/KG, PER MIN
     Route: 058
     Dates: start: 20180419
  67. REMODULIN [Concomitant]
     Active Substance: TREPROSTINIL
     Dosage: 28 NG/KG, PER MIN
     Route: 058
     Dates: start: 20180422
  68. REMODULIN [Concomitant]
     Active Substance: TREPROSTINIL
     Dosage: 30 NG/KG, PER MIN
     Route: 058
     Dates: start: 20180424
  69. REMODULIN [Concomitant]
     Active Substance: TREPROSTINIL
     Dosage: 32 NG/KG, PER MIN
     Route: 058
     Dates: start: 20180425
  70. REMODULIN [Concomitant]
     Active Substance: TREPROSTINIL
     Dosage: 34 NG/KG, PER MIN
     Route: 058
     Dates: start: 20180428, end: 20180530
  71. K CONTIN CONTINUS [Concomitant]
     Dosage: 2 DF, QD
     Route: 048
     Dates: start: 20180105, end: 20180201
  72. K CONTIN CONTINUS [Concomitant]
     Dosage: 1 DF, QD
     Route: 048
     Dates: start: 20180202, end: 20180221
  73. K CONTIN CONTINUS [Concomitant]
     Dosage: 1 DF, QD
     Route: 048
     Dates: start: 20180222, end: 20180225
  74. K CONTIN CONTINUS [Concomitant]
     Dosage: 4 DF, QD
     Route: 048
     Dates: start: 20180301, end: 20180302
  75. K CONTIN CONTINUS [Concomitant]
     Dosage: 1 DF, QD
     Route: 048
     Dates: start: 20180316, end: 20180430
  76. K CONTIN CONTINUS [Concomitant]
     Route: 048
     Dates: start: 20180222, end: 20180225
  77. ENOXAPARIN SODIUM [Concomitant]
     Active Substance: ENOXAPARIN SODIUM
     Dosage: 60 MG, QD
     Route: 058
  78. DIOVAN [Concomitant]
     Active Substance: VALSARTAN
     Route: 048
     Dates: start: 20180222, end: 20180224
  79. DIOVAN [Concomitant]
     Active Substance: VALSARTAN
     Route: 048
     Dates: start: 20180222, end: 20180224
  80. SUSPEN [PHENOXYMETHYLPENICILLIN POTASSIUM] [Concomitant]
     Dosage: 3 DF, QD
     Route: 048
     Dates: start: 20180222, end: 20180302
  81. SUSPEN [PHENOXYMETHYLPENICILLIN POTASSIUM] [Concomitant]
     Dosage: 1 DF, QD
     Route: 048
     Dates: start: 20180304, end: 20180305
  82. FEBUXOSTAT [Concomitant]
     Active Substance: FEBUXOSTAT
     Dosage: 40 MG, QD
     Route: 048
     Dates: start: 20180316, end: 20180425
  83. SILDENAFIL [Concomitant]
     Active Substance: SILDENAFIL
     Dates: start: 20151230, end: 20180208
  84. CIALIS [Concomitant]
     Active Substance: TADALAFIL
     Dosage: 40 MG, UNK
     Route: 048
     Dates: start: 20180417, end: 20180524
  85. AMILO [AMLODIPINE BESILATE] [Concomitant]
     Dosage: 5 MG, QD
     Route: 048
     Dates: start: 20180428, end: 20180502
  86. CALCIUM POLYSTYRENE SULFONATE [Concomitant]
     Active Substance: CALCIUM POLYSTYRENE SULFONATE
     Route: 048
     Dates: start: 20180501, end: 20180520
  87. SANCUSO [Concomitant]
     Active Substance: GRANISETRON
     Dates: start: 20180505, end: 20180530
  88. DOPAMIX [Concomitant]
     Route: 042
     Dates: start: 20180522, end: 20180530
  89. NEXIUM [Concomitant]
     Active Substance: ESOMEPRAZOLE MAGNESIUM
  90. LEVOTHYROXINE SODIUM [Concomitant]
     Active Substance: LEVOTHYROXINE SODIUM
     Indication: Pulmonary hypertension
     Dates: start: 20131017, end: 20180530
  91. POTASSIUM CHLORIDE [Concomitant]
     Active Substance: POTASSIUM CHLORIDE
     Dates: start: 20180222, end: 20180225
  92. POTASSIUM CHLORIDE [Concomitant]
     Active Substance: POTASSIUM CHLORIDE
     Dates: start: 20180105, end: 20180201
  93. POTASSIUM CHLORIDE [Concomitant]
     Active Substance: POTASSIUM CHLORIDE
     Dates: start: 20180301, end: 20180302
  94. POTASSIUM CHLORIDE [Concomitant]
     Active Substance: POTASSIUM CHLORIDE
     Dates: start: 20180316
  95. CALCIUM CARBONATE [Concomitant]
     Active Substance: CALCIUM CARBONATE
     Dates: start: 20171124, end: 20180524

REACTIONS (18)
  - Pulmonary hypertension [Fatal]
  - Cardiac failure [Fatal]
  - Cachexia [Fatal]
  - Subdural haematoma [Fatal]
  - Pneumonia [Fatal]
  - Somnolence [Fatal]
  - Stupor [Fatal]
  - Haemorrhage intracranial [Fatal]
  - Hypophagia [Not Recovered/Not Resolved]
  - Epidural haemorrhage [Not Recovered/Not Resolved]
  - Diarrhoea [Unknown]
  - Dyspepsia [Unknown]
  - Headache [Unknown]
  - Pain [Unknown]
  - Injection site pain [Not Recovered/Not Resolved]
  - Nausea [Unknown]
  - Upper respiratory tract infection [Unknown]
  - Epistaxis [Recovered/Resolved]

NARRATIVE: CASE EVENT DATE: 20170101
